FAERS Safety Report 9734709 (Version 2)
Quarter: 2014Q1

REPORT INFORMATION
  Report Type: Report from Study
  Country: MX (occurrence: MX)
  Receive Date: 20131206
  Receipt Date: 20140106
  Transmission Date: 20141002
  Serious: Yes (Death, Disabling)
  Sender: FDA-Public Use
  Company Number: MX-ROCHE-1310299

PATIENT
  Sex: Female

DRUGS (1)
  1. XELODA [Suspect]
     Indication: COLON CANCER
     Dosage: UNKNOWN CYCLE
     Route: 048
     Dates: start: 201304, end: 20131212

REACTIONS (7)
  - Pain in extremity [Unknown]
  - Local swelling [Unknown]
  - Fluid retention [Unknown]
  - Abasia [Unknown]
  - Burning sensation [Unknown]
  - Abdominal pain upper [Unknown]
  - Disease progression [Fatal]
